FAERS Safety Report 9119438 (Version 2)
Quarter: 2013Q1

REPORT INFORMATION
  Report Type: Spontaneous
  Country: DE (occurrence: DE)
  Receive Date: 20130207
  Receipt Date: 20130315
  Transmission Date: 20140127
  Serious: Yes (Other)
  Sender: FDA-Public Use
  Company Number: GXKR2013DE000767

PATIENT
  Age: 34 Year
  Sex: Female
  Weight: 97 kg

DRUGS (5)
  1. BELLA HEXAL [Suspect]
     Route: 048
  2. ZELDOX                                  /GFR/ [Concomitant]
     Dosage: 20 MG, BID
     Route: 048
     Dates: start: 2012
  3. CHLORPROTIXEN [Concomitant]
     Dosage: 30 MG, QD
     Route: 048
  4. L-THYROXIN [Concomitant]
     Dosage: 200 UG, QD
     Route: 048
  5. CALCIUM [Concomitant]
     Dosage: 1000 MG, QD
     Route: 048

REACTIONS (2)
  - Fibrocystic breast disease [Not Recovered/Not Resolved]
  - Breast pain [Not Recovered/Not Resolved]
